FAERS Safety Report 14037816 (Version 13)
Quarter: 2018Q4

REPORT INFORMATION
  Report Type: Report from Study
  Country: AU (occurrence: AU)
  Receive Date: 20171004
  Receipt Date: 20181119
  Transmission Date: 20190204
  Serious: Yes (Other)
  Sender: FDA-Public Use
  Company Number: PHHY2017AU108813

PATIENT
  Age: 54 Year
  Sex: Female

DRUGS (13)
  1. THYROXIN [Concomitant]
     Active Substance: LEVOTHYROXINE
     Indication: PRODUCT USED FOR UNKNOWN INDICATION
     Dosage: UNK
     Route: 065
     Dates: start: 2005
  2. CALCIUM + VITAMIN D [Concomitant]
     Active Substance: CALCIUM\VITAMIN D
     Indication: PRODUCT USED FOR UNKNOWN INDICATION
     Route: 065
  3. GLUCOSAMINE [Concomitant]
     Active Substance: GLUCOSAMINE
     Indication: PRODUCT USED FOR UNKNOWN INDICATION
     Route: 065
  4. GILENYA [Suspect]
     Active Substance: FINGOLIMOD HYDROCHLORIDE
     Dosage: UNK
     Route: 065
     Dates: start: 20181026
  5. LYRICA [Concomitant]
     Active Substance: PREGABALIN
     Dosage: 100 UG, BID
     Route: 065
  6. LYRICA [Concomitant]
     Active Substance: PREGABALIN
     Indication: PRODUCT USED FOR UNKNOWN INDICATION
     Dosage: 75 UG, BID
     Route: 065
     Dates: start: 2010
  7. GILENYA [Suspect]
     Active Substance: FINGOLIMOD HYDROCHLORIDE
     Indication: RELAPSING-REMITTING MULTIPLE SCLEROSIS
     Dosage: UNK
     Route: 048
     Dates: start: 201203
  8. HORSERADISH, GARLIC + C [Concomitant]
     Indication: PRODUCT USED FOR UNKNOWN INDICATION
     Dosage: UNK
     Route: 065
  9. VITAMIN B COMPLEX [Concomitant]
     Active Substance: CYANOCOBALAMIN\DEXPANTHENOL\NIACINAMIDE\PYRIDOXINE HYDROCHLORIDE\RIBOFLAVIN 5^-PHOSPHATE SODIUM\THIAMINE HYDROCHLORIDE\VITAMIN B COMPLEX
     Indication: PRODUCT USED FOR UNKNOWN INDICATION
     Route: 065
  10. FLAXSEED [Concomitant]
     Active Substance: FLAX SEED
     Indication: PRODUCT USED FOR UNKNOWN INDICATION
     Route: 065
  11. OLIVE LEAVES EXTRACT [Concomitant]
     Indication: PRODUCT USED FOR UNKNOWN INDICATION
     Route: 065
  12. MULTI VITAMIN [Concomitant]
     Active Substance: VITAMINS
     Indication: PRODUCT USED FOR UNKNOWN INDICATION
     Route: 065
  13. EVENING PRIMROSE OIL [Concomitant]
     Active Substance: EVENING PRIMROSE OIL\HERBALS
     Indication: PRODUCT USED FOR UNKNOWN INDICATION
     Route: 065

REACTIONS (55)
  - Lower respiratory tract infection [Unknown]
  - White blood cell count decreased [Not Recovered/Not Resolved]
  - Blood glucose increased [Unknown]
  - Cough [Recovering/Resolving]
  - Pain [Recovering/Resolving]
  - Limb injury [Not Recovered/Not Resolved]
  - Dizziness [Not Recovered/Not Resolved]
  - Weight fluctuation [Not Recovered/Not Resolved]
  - Neuropathy peripheral [Unknown]
  - Movement disorder [Unknown]
  - Dyspnoea [Recovering/Resolving]
  - Haemoglobin increased [Not Recovered/Not Resolved]
  - Lymphocyte count decreased [Not Recovered/Not Resolved]
  - Dyspnoea [Recovered/Resolved]
  - Dry eye [Not Recovered/Not Resolved]
  - Mood altered [Unknown]
  - Central nervous system lesion [Unknown]
  - Heart rate increased [Recovering/Resolving]
  - Arthralgia [Not Recovered/Not Resolved]
  - Immunodeficiency [Recovered/Resolved]
  - Fatigue [Not Recovered/Not Resolved]
  - Tremor [Not Recovered/Not Resolved]
  - Blood cholesterol increased [Not Recovered/Not Resolved]
  - Dysgraphia [Not Recovered/Not Resolved]
  - Vitamin D decreased [Not Recovered/Not Resolved]
  - Weight increased [Not Recovered/Not Resolved]
  - Malaise [Recovered/Resolved]
  - Sinus pain [Not Recovered/Not Resolved]
  - Headache [Recovered/Resolved]
  - Neuralgia [Not Recovered/Not Resolved]
  - Road traffic accident [Unknown]
  - Burns second degree [Unknown]
  - Paraesthesia [Recovering/Resolving]
  - Cystitis [Recovering/Resolving]
  - Sticky skin [Not Recovered/Not Resolved]
  - Burning sensation [Not Recovered/Not Resolved]
  - Asthenia [Not Recovered/Not Resolved]
  - Hypoaesthesia teeth [Recovered/Resolved]
  - Skin papilloma [Not Recovered/Not Resolved]
  - Stress [Not Recovered/Not Resolved]
  - Allodynia [Not Recovered/Not Resolved]
  - Balance disorder [Not Recovered/Not Resolved]
  - Bronchitis [Recovered/Resolved]
  - Viral infection [Recovered/Resolved]
  - Dry mouth [Not Recovered/Not Resolved]
  - Oropharyngeal pain [Not Recovered/Not Resolved]
  - Ear infection [Unknown]
  - Pain in extremity [Not Recovered/Not Resolved]
  - Muscle spasms [Not Recovered/Not Resolved]
  - Seasonal allergy [Not Recovered/Not Resolved]
  - Post-traumatic neck syndrome [Unknown]
  - Nasopharyngitis [Recovered/Resolved]
  - Back pain [Recovering/Resolving]
  - Head injury [Unknown]
  - Hypoaesthesia [Recovered/Resolved]

NARRATIVE: CASE EVENT DATE: 201209
